FAERS Safety Report 16887395 (Version 5)
Quarter: 2020Q1

REPORT INFORMATION
  Report Type: Spontaneous
  Country: ES (occurrence: ES)
  Receive Date: 20191004
  Receipt Date: 20200228
  Transmission Date: 20200409
  Serious: Yes (Other)
  Sender: FDA-Public Use
  Company Number: ES-009507513-1909ESP014516

PATIENT
  Age: 38 Year
  Sex: Female
  Weight: 67 kg

DRUGS (2)
  1. IMPLANON NXT [Suspect]
     Active Substance: ETONOGESTREL
     Indication: CONTRACEPTION
     Dosage: 1 IMPLANT, 3 YEARS
     Route: 059
     Dates: start: 20170730, end: 20191011
  2. IMPLANON NXT [Suspect]
     Active Substance: ETONOGESTREL
     Dosage: 1 IMPLANT, 3 YEARS
     Route: 059
     Dates: start: 2014, end: 20170730

REACTIONS (4)
  - Unintended pregnancy [Recovered/Resolved]
  - Injury [Unknown]
  - Pregnancy with implant contraceptive [Recovered/Resolved]
  - Menstruation irregular [Unknown]

NARRATIVE: CASE EVENT DATE: 20190524
